FAERS Safety Report 6902782-3 (Version None)
Quarter: 2010Q3

REPORT INFORMATION
  Report Type: 
  Country: None (occurrence: None)
  Receive Date: 20100803
  Receipt Date: 20080902
  Transmission Date: 20110219
  Serious: No
  Sender: FDA-Public Use
  Company Number: US-PFIZER INC-2008074155

PATIENT
  Sex: Female
  Weight: 89.09 kg

DRUGS (4)
  1. LYRICA [Suspect]
     Indication: FLANK PAIN
     Dates: start: 20080830
  2. PANADEINE CO [Concomitant]
  3. DOXEPIN HCL [Concomitant]
  4. ALL OTHER THERAPEUTIC PRODUCTS [Concomitant]

REACTIONS (1)
  - DYSKINESIA [None]
